FAERS Safety Report 8930249 (Version 1)
Quarter: 2012Q4

REPORT INFORMATION
  Report Type: 
  Country: US (occurrence: US)
  Receive Date: 20121128
  Receipt Date: 20121128
  Transmission Date: 20130627
  Serious: No
  Sender: FDA-Public Use
  Company Number: US-B.I. PHARMACEUTICALS,INC./RIDGEFIELD-2012-BI-01094BP

PATIENT
  Age: 59 Year
  Sex: Female

DRUGS (8)
  1. SPIRIVA [Suspect]
     Indication: CHRONIC OBSTRUCTIVE PULMONARY DISEASE
     Dosage: 18 mcg
     Route: 055
  2. SPIRIVA [Suspect]
     Dosage: 18 mcg
     Route: 048
     Dates: start: 20121120, end: 20121120
  3. LOSARTAN [Concomitant]
     Indication: HYPERTENSION
     Route: 048
  4. KLOR CON [Concomitant]
     Route: 048
  5. PRILOSEC OTC [Concomitant]
     Route: 048
  6. SINGULAIR [Concomitant]
     Route: 048
  7. ATENOLOL [Concomitant]
     Indication: HYPERTENSION
     Dosage: 100 mg
     Route: 048
  8. VENTOLIN [Concomitant]
     Route: 055

REACTIONS (3)
  - Spinal column stenosis [Not Recovered/Not Resolved]
  - Intervertebral disc degeneration [Not Recovered/Not Resolved]
  - Incorrect route of drug administration [Recovered/Resolved]
